FAERS Safety Report 6949602 (Version 2)
Quarter: 2012Q4

REPORT INFORMATION
  Report Type: 
  Country: US (occurrence: US)
  Receive Date: 20090324
  Receipt Date: 20121109
  Transmission Date: 20130627
  Serious: Yes (Other)
  Sender: FDA-Public Use
  Company Number: US-PFIZER INC-2006067477

PATIENT
  Age: 57 Year
  Sex: Female
  Weight: 81 kg

DRUGS (7)
  1. PREMARIN [Suspect]
     Indication: HORMONE REPLACEMENT THERAPY
     Dosage: 0.625 mg, 1x/day
     Route: 048
     Dates: start: 1992, end: 2003
  2. PREMARIN [Suspect]
     Indication: MENOPAUSAL SYMPTOMS
  3. MEDROXYPROGESTERONE ACETATE TABLET [Suspect]
     Indication: HORMONE REPLACEMENT THERAPY
     Dosage: UNK
     Route: 048
     Dates: start: 1995, end: 2003
  4. MEDROXYPROGESTERONE ACETATE TABLET [Suspect]
     Indication: MENOPAUSAL SYMPTOMS
  5. CYCRIN [Suspect]
     Indication: HORMONE REPLACEMENT THERAPY
     Dosage: 2.5 mg, 1x/day
     Route: 048
     Dates: start: 1992, end: 2003
  6. CYCRIN [Suspect]
     Indication: MENOPAUSAL SYMPTOMS
  7. LEVOTHYROXINE [Concomitant]
     Indication: THYROID FUNCTION DECREASED
     Dosage: 150 ug, 1x/day
     Route: 048
     Dates: start: 199311

REACTIONS (1)
  - Breast cancer female [Unknown]
